FAERS Safety Report 25680442 (Version 2)
Quarter: 2025Q3

REPORT INFORMATION
  Report Type: Spontaneous
  Country: CH (occurrence: CH)
  Receive Date: 20250814
  Receipt Date: 20250814
  Transmission Date: 20251021
  Serious: Yes (Other)
  Sender: MYLAN
  Company Number: CH-MYLANLABS-2025M1068195

PATIENT
  Age: 76 Year
  Sex: Male

DRUGS (4)
  1. LATANOPROST [Suspect]
     Active Substance: LATANOPROST
     Indication: Angle closure glaucoma
     Dosage: 1 GTT DROPS, QD (DAILY, PER EYE)
     Dates: end: 20250729
  2. GINKGO [Concomitant]
     Active Substance: GINKGO
     Dosage: 1 DOSAGE FORM, QD ( 1X DAILY)
     Dates: start: 20250701
  3. AZOPT [Concomitant]
     Active Substance: BRINZOLAMIDE
     Dosage: UNK, QD (PER DAY PER EYE)
     Dates: start: 20250501
  4. NEVANAC [Concomitant]
     Active Substance: NEPAFENAC
     Dosage: 1 DOSAGE FORM, QD (1X DAILY PER EYE)(DISCONTINUED WITH LATANOPROST)
     Dates: start: 20250501, end: 20250729

REACTIONS (2)
  - Retinal oedema [Unknown]
  - Product prescribing issue [Unknown]

NARRATIVE: CASE EVENT DATE: 20250501
